FAERS Safety Report 18342185 (Version 3)
Quarter: 2021Q2

REPORT INFORMATION
  Report Type: Report from Study
  Country: US (occurrence: US)
  Receive Date: 20201005
  Receipt Date: 20210630
  Transmission Date: 20210717
  Serious: No
  Sender: FDA-Public Use
  Company Number: US-B.I. PHARMACEUTICALS,INC./RIDGEFIELD-2020-BI-052649

PATIENT
  Age: 81 Year
  Sex: Male

DRUGS (2)
  1. OFEV [Suspect]
     Active Substance: NINTEDANIB
     Indication: IDIOPATHIC PULMONARY FIBROSIS
     Dosage: 100MG CAPSULE TWICE DAILY
     Route: 048
     Dates: start: 20160707
  2. OFEV [Suspect]
     Active Substance: NINTEDANIB
     Route: 048
     Dates: start: 20170327

REACTIONS (8)
  - Amnesia [Unknown]
  - Decreased appetite [Not Recovered/Not Resolved]
  - Colitis ulcerative [Recovering/Resolving]
  - Colitis [Recovering/Resolving]
  - Abdominal discomfort [Not Recovered/Not Resolved]
  - Haematochezia [Unknown]
  - Gastric disorder [Not Recovered/Not Resolved]
  - Memory impairment [Not Recovered/Not Resolved]

NARRATIVE: CASE EVENT DATE: 20210429
